FAERS Safety Report 10714687 (Version 1)
Quarter: 2015Q1

REPORT INFORMATION
  Report Type: Spontaneous
  Country: BR (occurrence: BR)
  Receive Date: 20150115
  Receipt Date: 20150115
  Transmission Date: 20150721
  Serious: Yes (Hospitalization)
  Sender: FDA-Public Use
  Company Number: BR-PFIZER INC-2014324495

PATIENT
  Age: 45 Year
  Sex: Female

DRUGS (4)
  1. ZOLOFT [Suspect]
     Active Substance: SERTRALINE HYDROCHLORIDE
     Indication: MIGRAINE
     Dosage: 2 TABLETS IN THE MORNING AND 1 TABLET AT NIGHT
     Dates: start: 201405
  2. FRONTAL [Suspect]
     Active Substance: ALPRAZOLAM
     Indication: SEIZURE
  3. FRONTAL [Suspect]
     Active Substance: ALPRAZOLAM
     Indication: MIGRAINE
     Dosage: HALF TABLET (OF 2 MG) IN THE MORNING AND 2 TABLETS AT NIGHT
     Dates: start: 201405
  4. ZOLOFT [Suspect]
     Active Substance: SERTRALINE HYDROCHLORIDE
     Indication: SEIZURE

REACTIONS (7)
  - Blood pressure increased [Recovered/Resolved]
  - Feeling abnormal [Recovered/Resolved]
  - Vomiting [Recovered/Resolved]
  - Migraine [Recovered/Resolved]
  - Muscle spasms [Recovered/Resolved]
  - Syncope [Recovered/Resolved]
  - Blood pressure decreased [Recovered/Resolved]

NARRATIVE: CASE EVENT DATE: 2014
